FAERS Safety Report 18886583 (Version 2)
Quarter: 2021Q1

REPORT INFORMATION
  Report Type: Report from Study
  Country: CZ (occurrence: CZ)
  Receive Date: 20210212
  Receipt Date: 20210215
  Transmission Date: 20210420
  Serious: Yes (Death, Hospitalization)
  Sender: FDA-Public Use
  Company Number: CZ-ASTRAZENECA-2021A004788

PATIENT
  Age: 28664 Day
  Sex: Male

DRUGS (17)
  1. GEMCITABINE. [Suspect]
     Active Substance: GEMCITABINE
     Indication: BLADDER CANCER
     Dosage: 1640 MG
     Route: 065
     Dates: start: 20201015, end: 20201015
  2. CISPLATIN. [Suspect]
     Active Substance: CISPLATIN
     Indication: BLADDER CANCER
     Dosage: 114.8 MG
     Route: 065
     Dates: start: 20200924, end: 20200924
  3. MEDROL [Concomitant]
     Active Substance: METHYLPREDNISOLONE
     Indication: RENAL FAILURE
     Route: 048
     Dates: start: 20201222, end: 20210105
  4. MEDROL [Concomitant]
     Active Substance: METHYLPREDNISOLONE
     Indication: RENAL FAILURE
     Route: 048
     Dates: start: 20210105
  5. REMESTYP [Concomitant]
     Indication: HAEMATURIA
     Route: 042
     Dates: start: 20210102, end: 20210111
  6. CISPLATIN. [Suspect]
     Active Substance: CISPLATIN
     Indication: BLADDER CANCER
     Dosage: 57.4 MG
     Route: 065
     Dates: start: 20201015, end: 20201015
  7. CONTROLOC [Concomitant]
     Active Substance: PANTOPRAZOLE SODIUM
     Indication: ULCER
     Route: 048
     Dates: start: 20201230
  8. ALGIFEN NEO [Concomitant]
     Indication: PAIN PROPHYLAXIS
     Route: 048
     Dates: start: 20201230
  9. TAZOCIN [Concomitant]
     Active Substance: PIPERACILLIN SODIUM\TAZOBACTAM SODIUM
     Indication: PNEUMONIA
     Dosage: THREE TIMES A DAY
     Route: 042
     Dates: start: 20201230
  10. GEMCITABINE. [Suspect]
     Active Substance: GEMCITABINE
     Indication: BLADDER CANCER
     Dosage: 1640 MG
     Route: 065
     Dates: start: 20200924, end: 20200924
  11. DURVALUMAB. [Suspect]
     Active Substance: DURVALUMAB
     Indication: BLADDER CANCER
     Dosage: 1500.0MG ONCE/SINGLE ADMINISTRATION
     Route: 042
     Dates: start: 20201015, end: 20201015
  12. DICYNONE [Concomitant]
     Active Substance: ETHAMSYLATE
     Indication: HAEMATURIA
     Route: 042
     Dates: start: 20210102
  13. FILGRASTIM [Concomitant]
     Active Substance: FILGRASTIM
     Indication: LEUKOPENIA
     Route: 058
     Dates: start: 20201230, end: 20201231
  14. DURVALUMAB. [Suspect]
     Active Substance: DURVALUMAB
     Indication: BLADDER CANCER
     Dosage: 1500.0MG ONCE/SINGLE ADMINISTRATION
     Route: 042
     Dates: start: 20200924, end: 20200924
  15. CIPROFLOXACIN KABI [Concomitant]
     Active Substance: CIPROFLOXACIN
     Indication: PNEUMONIA
     Route: 042
     Dates: start: 20201230
  16. NOVORAPID [Concomitant]
     Active Substance: INSULIN ASPART
     Indication: STEROID DIABETES
     Route: 058
     Dates: start: 20201230
  17. APO?OME [Concomitant]
     Active Substance: OMEPRAZOLE
     Indication: ULCER
     Route: 048
     Dates: start: 20201217

REACTIONS (1)
  - Thrombocytopenia [Not Recovered/Not Resolved]

NARRATIVE: CASE EVENT DATE: 20210111
